FAERS Safety Report 5447883-4 (Version None)
Quarter: 2007Q3

REPORT INFORMATION
  Report Type: 
  Country: None (occurrence: None)
  Receive Date: 20070910
  Receipt Date: 20070828
  Transmission Date: 20080115
  Serious: Yes (Hospitalization)
  Sender: FDA-Public Use
  Company Number: US-SHR-US-2007-016276

PATIENT
  Age: 38 Year
  Sex: Female
  Weight: 110 kg

DRUGS (17)
  1. BETASERON [Suspect]
     Indication: RELAPSING-REMITTING MULTIPLE SCLEROSIS
     Dosage: 8 MIU, EVERY 2D
     Route: 058
     Dates: start: 20060915, end: 20070106
  2. BETASERON [Suspect]
     Dosage: 8 MIU, EVERY 2D
     Route: 058
     Dates: start: 20070205, end: 20070507
  3. BETASERON [Suspect]
     Dosage: 8 MIU, EVERY 2D
     Route: 058
     Dates: start: 20070510
  4. TRAZODONE HCL [Concomitant]
     Dosage: 150 MG, 1X/DAY
  5. KLONOPIN [Concomitant]
     Dosage: UNK, 1X/DAY
  6. EFFEXOR                                 /USA/ [Concomitant]
     Dosage: 75 MG, 1X/DAY
  7. LYRICA [Concomitant]
     Dosage: 150 MG, 1X/DAY
  8. ALTACE [Concomitant]
     Dosage: 10 MG, 1X/DAY
  9. PREVACID [Concomitant]
     Dosage: 30 MG, 1X/DAY
  10. MIRALAX [Concomitant]
     Dosage: UNK, 1X/DAY
  11. NAPROSYN [Concomitant]
     Dosage: 500 MG, 2X/DAY
  12. ZANAFLEX [Concomitant]
     Dosage: 4 MG, 2X/DAY
  13. TEGRETOL [Concomitant]
     Dosage: 200 MG, 3X/DAY
  14. PROPRANOLOL [Concomitant]
     Dosage: UNK, 3X/DAY
  15. ULTRAM [Concomitant]
     Dosage: 200 MG, 4X/DAY
  16. HYDROCHLOROTHIAZIDE [Concomitant]
  17. NOVANTRONE [Concomitant]
     Dosage: EVERY 8 WEEKS

REACTIONS (9)
  - DIZZINESS [None]
  - FEELING ABNORMAL [None]
  - LOSS OF CONSCIOUSNESS [None]
  - LOWER LIMB FRACTURE [None]
  - MULTIPLE SCLEROSIS [None]
  - MULTIPLE SCLEROSIS RELAPSE [None]
  - NAUSEA [None]
  - PAIN IN EXTREMITY [None]
  - VOMITING [None]
